FAERS Safety Report 4768934-6 (Version None)
Quarter: 2005Q3

REPORT INFORMATION
  Report Type: 
  Country: None (occurrence: None)
  Receive Date: 20050914
  Receipt Date: 20050902
  Transmission Date: 20060218
  Serious: Yes (Hospitalization, Other)
  Sender: FDA-Public Use
  Company Number: GBWYE877302AUG05

PATIENT
  Sex: Female

DRUGS (6)
  1. EFFEXOR XR [Suspect]
     Indication: POSTPARTUM DEPRESSION
     Dosage: 150MG, TRANSPLACENTAL
     Route: 064
     Dates: start: 20031001
  2. EFFEXOR XR [Suspect]
     Indication: PSYCHOTIC DISORDER
     Dosage: 150MG, TRANSPLACENTAL
     Route: 064
     Dates: start: 20031001
  3. OLANZAPINE [Suspect]
     Indication: POSTPARTUM DEPRESSION
     Dosage: SEE IMAGE, TRANSPLACENTAL
     Route: 064
     Dates: start: 20050101, end: 20050101
  4. OLANZAPINE [Suspect]
     Indication: PSYCHOTIC DISORDER
     Dosage: SEE IMAGE, TRANSPLACENTAL
     Route: 064
     Dates: start: 20050101, end: 20050101
  5. OLANZAPINE [Suspect]
     Indication: POSTPARTUM DEPRESSION
     Dosage: SEE IMAGE, TRANSPLACENTAL
     Route: 064
     Dates: start: 20050101
  6. OLANZAPINE [Suspect]
     Indication: PSYCHOTIC DISORDER
     Dosage: SEE IMAGE, TRANSPLACENTAL
     Route: 064
     Dates: start: 20050101

REACTIONS (3)
  - DRUG EXPOSURE DURING PREGNANCY [None]
  - FEEDING DISORDER NEONATAL [None]
  - POOR SUCKING REFLEX [None]
